FAERS Safety Report 8367484-8 (Version None)
Quarter: 2012Q2

REPORT INFORMATION
  Report Type: 
  Country: None (occurrence: None)
  Receive Date: 20120517
  Receipt Date: 20120313
  Transmission Date: 20120825
  Serious: No
  Sender: FDA-Public Use
  Company Number: US-GLAXOSMITHKLINE-A0969667A

PATIENT
  Age: 84 Year
  Sex: Male

DRUGS (4)
  1. CALCIUM CARBONATE [Concomitant]
  2. THYROID MEDICATION [Concomitant]
  3. VOTRIENT [Suspect]
     Indication: RENAL CELL CARCINOMA
     Dosage: 400MG PER DAY
     Route: 048
     Dates: start: 20120209
  4. BENADRYL [Concomitant]

REACTIONS (1)
  - DYSPHONIA [None]
